APPROVED DRUG PRODUCT: ORPHENADRINE CITRATE
Active Ingredient: ORPHENADRINE CITRATE
Strength: 100MG
Dosage Form/Route: TABLET, EXTENDED RELEASE;ORAL
Application: A040368 | Product #001
Applicant: JEROME STEVENS PHARMACEUTICALS INC
Approved: Jun 23, 2000 | RLD: No | RS: No | Type: DISCN